FAERS Safety Report 7691184-0 (Version None)
Quarter: 2011Q3

REPORT INFORMATION
  Report Type: 
  Country: None (occurrence: None)
  Receive Date: 20110815
  Receipt Date: 20110802
  Transmission Date: 20111222
  Serious: No
  Sender: FDA-Public Use
  Company Number: TCI2011A04167

PATIENT

DRUGS (1)
  1. ACTOS [Suspect]
     Route: 048

REACTIONS (3)
  - SPUTUM PURULENT [None]
  - DYSPNOEA [None]
  - INTERSTITIAL LUNG DISEASE [None]
